FAERS Safety Report 6524587-8 (Version None)
Quarter: 2010Q1

REPORT INFORMATION
  Report Type: 
  Country: None (occurrence: None)
  Receive Date: 20100104
  Receipt Date: 20091222
  Transmission Date: 20100710
  Serious: Yes (Hospitalization, Disabling)
  Sender: FDA-Public Use
  Company Number: PHHY2009FR42165

PATIENT
  Sex: Female

DRUGS (9)
  1. CGP 57148B T35717+ [Suspect]
     Indication: CHRONIC MYELOID LEUKAEMIA
     Dosage: 400 MG, UNK
     Route: 048
     Dates: start: 20070420, end: 20090708
  2. DIGOXIN [Concomitant]
  3. TENORMIN [Concomitant]
  4. KARDEGIC [Concomitant]
     Dosage: UNK
  5. OMEPRAZOLE [Concomitant]
  6. MOTILIUM [Concomitant]
  7. IMODIUM [Concomitant]
  8. TIORFAN [Concomitant]
  9. ARANESP [Concomitant]
     Dosage: UNK

REACTIONS (5)
  - DIARRHOEA [None]
  - FATIGUE [None]
  - NEUROPATHY PERIPHERAL [None]
  - PAIN IN EXTREMITY [None]
  - WEIGHT DECREASED [None]
